FAERS Safety Report 9514307 (Version 2)
Quarter: 2013Q4

REPORT INFORMATION
  Report Type: Spontaneous
  Country: US (occurrence: US)
  Receive Date: 20130911
  Receipt Date: 20131021
  Transmission Date: 20140711
  Serious: Yes (Hospitalization)
  Sender: FDA-Public Use
  Company Number: US-009507513-1309USA003732

PATIENT
  Sex: Female

DRUGS (1)
  1. IMPLANON [Suspect]
     Indication: CONTRACEPTION
     Dosage: DOSE: 1 ROD, 68 MILLIGRAM 1 STANDARD DOSE OF 1
     Route: 059
     Dates: end: 2013

REACTIONS (2)
  - Adverse event [Unknown]
  - Device breakage [Recovered/Resolved]
